FAERS Safety Report 6138855 (Version 23)
Quarter: 2013Q3

REPORT INFORMATION
  Report Type: Spontaneous
  Country: US (occurrence: US)
  Receive Date: 20060929
  Receipt Date: 20130724
  Transmission Date: 20140515
  Serious: Yes (Death, Hospitalization, Other)
  Sender: FDA-Public Use
  Company Number: PHEH2006US11914

PATIENT
  Age: 47 Year
  Sex: Female
  Weight: 58.05 kg

DRUGS (35)
  1. AROMASIN [Concomitant]
  2. TEMAZEPAM [Concomitant]
  3. VITAMIN D [Concomitant]
  4. AVELOX [Concomitant]
     Dosage: 400 MG, DAILY
  5. MAGNESIUM OXIDE [Concomitant]
  6. FLAGYL [Concomitant]
  7. KCL [Concomitant]
  8. IBUPROFEN [Concomitant]
  9. TOBRADEX [Concomitant]
  10. LYRICA [Concomitant]
     Dosage: 50 MG, BID
  11. PREVACID [Concomitant]
     Dosage: 30 MG, UNK
  12. TYLENOL [Concomitant]
  13. ACETYLSALICYLIC ACID [Concomitant]
  14. ACETAMINOPHEN [Concomitant]
  15. TAXOL [Concomitant]
  16. ADRIAMYCIN [Concomitant]
  17. CYCLOPHOSPHAMIDE [Concomitant]
  18. CYTOXAN [Concomitant]
  19. ONDANSETRON [Concomitant]
  20. COMPAZINE [Concomitant]
  21. XELODA [Concomitant]
  22. PRILOSEC [Concomitant]
     Dosage: 20 MG, BID
  23. COMBIVENT [Concomitant]
  24. CLOTRIMAZOLE [Concomitant]
     Dosage: 10 MG, TID
  25. LEVAQUIN [Concomitant]
  26. FASLODEX [Concomitant]
  27. AREDIA [Suspect]
     Indication: BREAST CANCER
     Dates: start: 20011203
  28. ZOMETA [Suspect]
     Indication: METASTASES TO BONE
     Dosage: 4 MG, QMO
     Route: 042
     Dates: start: 20020703, end: 20040907
  29. RADIATION THERAPY [Concomitant]
  30. VICODIN [Concomitant]
     Indication: PAIN IN JAW
  31. FEMARA [Concomitant]
     Indication: BREAST CANCER
     Dosage: 2.5 MG, QD
     Route: 048
  32. CELEXA [Concomitant]
  33. COUMADIN [Concomitant]
  34. SIMVASTATIN [Concomitant]
     Dosage: 20 MG, QD
     Route: 048
  35. TAXOTERE [Concomitant]

REACTIONS (118)
  - Breast cancer metastatic [Fatal]
  - Biopsy breast abnormal [Unknown]
  - Metastases to bone [Unknown]
  - Malignant neoplasm progression [Unknown]
  - Metastases to central nervous system [Unknown]
  - Metastases to adrenals [Unknown]
  - Septic shock [Unknown]
  - Central nervous system lesion [Unknown]
  - Pulmonary hilum mass [Recovering/Resolving]
  - Osteonecrosis of jaw [Not Recovered/Not Resolved]
  - Pain [Unknown]
  - Deformity [Unknown]
  - Hypophagia [Unknown]
  - Emotional distress [Unknown]
  - Anxiety [Unknown]
  - General physical health deterioration [Unknown]
  - Decreased interest [Unknown]
  - Dental caries [Unknown]
  - Pain in jaw [Recovered/Resolved]
  - Bone disorder [Not Recovered/Not Resolved]
  - Large intestine polyp [Unknown]
  - Hyperplasia [Unknown]
  - Blood glucose increased [Unknown]
  - Asthenia [Unknown]
  - Neutropenia [Unknown]
  - Sepsis [Unknown]
  - Hypotension [Unknown]
  - Pneumonia [Recovered/Resolved]
  - Pyrexia [Unknown]
  - Atelectasis [Unknown]
  - Chills [Unknown]
  - Cough [Unknown]
  - Pleural effusion [Unknown]
  - Bronchial disorder [Unknown]
  - Pulmonary oedema [Unknown]
  - Oral candidiasis [Unknown]
  - Muscular weakness [Unknown]
  - Gait disturbance [Unknown]
  - Lumbar spinal stenosis [Unknown]
  - Intervertebral disc protrusion [Unknown]
  - Osteoarthritis [Unknown]
  - Pulmonary hypertension [Unknown]
  - Aortic valve sclerosis [Unknown]
  - Tachycardia [Unknown]
  - Dyspepsia [Unknown]
  - Gastrooesophageal reflux disease [Unknown]
  - Migraine [Unknown]
  - Breast cyst [Unknown]
  - Fatigue [Unknown]
  - Decreased appetite [Unknown]
  - Depression [Unknown]
  - Herpes zoster [Unknown]
  - Alopecia [Unknown]
  - Pulmonary fibrosis [Unknown]
  - Ureteric dilatation [Unknown]
  - Lymphadenopathy [Unknown]
  - Diplopia [Recovered/Resolved]
  - Vision blurred [Unknown]
  - Lacrimation increased [Unknown]
  - Abdominal discomfort [Unknown]
  - Lung infiltration [Unknown]
  - Wound [Recovered/Resolved]
  - Palmar-plantar erythrodysaesthesia syndrome [Unknown]
  - Mass [Unknown]
  - Exostosis [Unknown]
  - Thrombocytopenia [Unknown]
  - Myopia [Unknown]
  - Skin ulcer [Unknown]
  - Anaemia [Unknown]
  - Hypokalaemia [Unknown]
  - Hyperkalaemia [Unknown]
  - Pneumonitis [Unknown]
  - Dyspnoea [Unknown]
  - Dizziness [Unknown]
  - Headache [Unknown]
  - Neuropathy peripheral [Unknown]
  - Aortic arteriosclerosis [Unknown]
  - Tooth infection [Unknown]
  - Renal failure acute [Unknown]
  - Urinary tract infection [Unknown]
  - Dysuria [Unknown]
  - Haematuria [Unknown]
  - Vasogenic cerebral oedema [Unknown]
  - Tendonitis [Unknown]
  - Cheilitis [Unknown]
  - Benign laryngeal neoplasm [Unknown]
  - Oesophagitis [Unknown]
  - Emphysema [Unknown]
  - Pleural fibrosis [Unknown]
  - Ovarian cyst [Unknown]
  - Ovarian enlargement [Unknown]
  - Presyncope [Unknown]
  - Fall [Unknown]
  - Osteomyelitis [Unknown]
  - Cardiac enzymes increased [Unknown]
  - Respiratory failure [Unknown]
  - Atrial fibrillation [Unknown]
  - Tricuspid valve incompetence [Unknown]
  - Mitral valve incompetence [Unknown]
  - Vasculitis necrotising [Unknown]
  - Skin lesion [Unknown]
  - Carpal tunnel syndrome [Unknown]
  - Epicondylitis [Unknown]
  - Mouth haemorrhage [Unknown]
  - Neurofibroma [Unknown]
  - Pancytopenia [Unknown]
  - Dyslipidaemia [Unknown]
  - Sensory loss [Unknown]
  - Sinus tachycardia [Unknown]
  - Diarrhoea [Unknown]
  - Dehydration [Unknown]
  - Candida infection [Unknown]
  - Dysphagia [Unknown]
  - Vitamin D deficiency [Unknown]
  - Back pain [Unknown]
  - Spinal pain [Unknown]
  - Facet joint syndrome [Unknown]
  - Respiratory distress [Unknown]
